FAERS Safety Report 5507018-6 (Version None)
Quarter: 2007Q4

REPORT INFORMATION
  Report Type: 
  Country: None (occurrence: None)
  Receive Date: 20071105
  Receipt Date: 20071025
  Transmission Date: 20080405
  Serious: Yes (Other)
  Sender: FDA-Public Use
  Company Number: BE-BOEHRINGER INGELHEIM PHARMACEUTICALS, INC.-2007-BL-00174BL

PATIENT
  Age: 81 Year
  Sex: Male

DRUGS (8)
  1. ACEDICONE [Suspect]
     Indication: RESTLESS LEGS SYNDROME
     Route: 048
     Dates: start: 20070101
  2. SIFROL [Suspect]
     Indication: RESTLESS LEGS SYNDROME
     Route: 048
  3. MAXSOTEN [Concomitant]
     Dosage: HALF OF 10/25 MG TABLET
     Route: 048
  4. MARCUMAR [Concomitant]
     Indication: INTERNATIONAL NORMALISED RATIO
     Dosage: NOT REPORTED
     Route: 048
  5. LANOXIN [Concomitant]
     Dosage: NOT REPORTED
     Route: 048
  6. TRITACE [Concomitant]
     Route: 048
  7. VALTRAN [Concomitant]
     Indication: RESTLESS LEGS SYNDROME
     Dosage: 50MG/0,72ML (20 DROPS=0,72ML)
     Route: 048
  8. PARACODINE [Concomitant]
     Indication: RESTLESS LEGS SYNDROME
     Route: 048

REACTIONS (4)
  - ABDOMINAL PAIN UPPER [None]
  - DEPENDENCE [None]
  - RESTLESSNESS [None]
  - SOMNOLENCE [None]
